FAERS Safety Report 12174140 (Version 5)
Quarter: 2016Q3

REPORT INFORMATION
  Report Type: Report from Study
  Country: BR (occurrence: BR)
  Receive Date: 20160314
  Receipt Date: 20160920
  Transmission Date: 20161109
  Serious: Yes (Hospitalization)
  Sender: FDA-Public Use
  Company Number: BR-ROCHE-1451719

PATIENT
  Age: 90 Year
  Sex: Female
  Weight: 58 kg

DRUGS (8)
  1. METHOTREXATE. [Concomitant]
     Active Substance: METHOTREXATE
     Indication: RHEUMATOID ARTHRITIS
     Route: 058
     Dates: start: 20130115
  2. KETOROLAC [Concomitant]
     Active Substance: KETOROLAC\KETOROLAC TROMETHAMINE
     Indication: PAIN
     Route: 060
  3. BUSCOPAN [Concomitant]
     Active Substance: BUTYLSCOPOLAMINE BROMIDE
  4. TYLEX (BRAZIL) [Concomitant]
     Active Substance: ACETAMINOPHEN\CODEINE PHOSPHATE
  5. MABTHERA [Suspect]
     Active Substance: RITUXIMAB
     Indication: RHEUMATOID ARTHRITIS
     Dosage: LATEST INFUSION ON 15/AUG/2015.
     Route: 042
     Dates: start: 20120914
  6. VONAU FLASH [Concomitant]
  7. MABTHERA [Suspect]
     Active Substance: RITUXIMAB
     Dosage: LATEST INFUSION ON15/MAR/2014.
     Route: 042
     Dates: start: 20130222
  8. NEXIUM [Concomitant]
     Active Substance: ESOMEPRAZOLE MAGNESIUM
     Indication: GASTRIC DISORDER

REACTIONS (11)
  - Pancreatitis [Recovered/Resolved]
  - Intervertebral disc disorder [Unknown]
  - Obstruction [Unknown]
  - Hyponatraemia [Recovered/Resolved]
  - Asthenia [Not Recovered/Not Resolved]
  - Arthralgia [Recovered/Resolved]
  - Urinary tract infection [Recovered/Resolved]
  - Intervertebral disc protrusion [Unknown]
  - Spinal column stenosis [Unknown]
  - Malaise [Not Recovered/Not Resolved]
  - Bronchiolitis [Recovered/Resolved]

NARRATIVE: CASE EVENT DATE: 20140723
